FAERS Safety Report 17615593 (Version 2)
Quarter: 2020Q2

REPORT INFORMATION
  Report Type: Spontaneous
  Country: US (occurrence: US)
  Receive Date: 20200402
  Receipt Date: 20200529
  Transmission Date: 20200713
  Serious: Yes (Life-Threatening, Hospitalization, Other)
  Sender: FDA-Public Use
  Company Number: US-ALEXION-A202004361

PATIENT
  Age: 39 Year
  Sex: Female

DRUGS (1)
  1. SOLIRIS [Suspect]
     Active Substance: ECULIZUMAB
     Indication: ATYPICAL HAEMOLYTIC URAEMIC SYNDROME
     Dosage: 300 MG, Q2W
     Route: 042
     Dates: start: 2011, end: 202001

REACTIONS (14)
  - Wheelchair user [Unknown]
  - Dizziness [Unknown]
  - Renal failure [Not Recovered/Not Resolved]
  - Loss of employment [Unknown]
  - Victim of abuse [Unknown]
  - Renal transplant [Recovered/Resolved]
  - Infection susceptibility increased [Unknown]
  - Mental fatigue [Unknown]
  - Contusion [Unknown]
  - Transplant rejection [Unknown]
  - Anaemia [Unknown]
  - Overdose [Recovered/Resolved]
  - Asthenia [Unknown]
  - Malaise [Unknown]

NARRATIVE: CASE EVENT DATE: 2013
